FAERS Safety Report 8302302-5 (Version None)
Quarter: 2012Q2

REPORT INFORMATION
  Report Type: 
  Country: None (occurrence: None)
  Receive Date: 20120418
  Receipt Date: 20120418
  Transmission Date: 20120825
  Serious: No
  Sender: FDA-Public Use
  Company Number: None

PATIENT
  Sex: Female

DRUGS (1)
  1. ENBREL [Suspect]
     Indication: RHEUMATOID ARTHRITIS
     Dosage: 50MG WEEKLY SQ
     Route: 058
     Dates: start: 20090520

REACTIONS (5)
  - MAMMOGRAM ABNORMAL [None]
  - EMPHYSEMA [None]
  - CARDIAC FAILURE CONGESTIVE [None]
  - DEPRESSION [None]
  - VISION BLURRED [None]
